FAERS Safety Report 4940810-5 (Version None)
Quarter: 2006Q1

REPORT INFORMATION
  Report Type: 
  Country: None (occurrence: None)
  Receive Date: 20060307
  Receipt Date: 20060223
  Transmission Date: 20060701
  Serious: Yes (Hospitalization)
  Sender: FDA-Public Use
  Company Number: 2006028908

PATIENT
  Age: 79 Year
  Sex: Female
  Weight: 44.4525 kg

DRUGS (3)
  1. HALCION [Suspect]
     Indication: SLEEP DISORDER
     Dosage: 0.25 MG (0.25 MG, EVERY NIGHT), ORAL
     Route: 048
  2. VALIUM [Concomitant]
  3. VICODIN [Concomitant]

REACTIONS (6)
  - APHONIA [None]
  - HEADACHE [None]
  - INSOMNIA [None]
  - TREATMENT NONCOMPLIANCE [None]
  - VAGINAL HAEMORRHAGE [None]
  - WEIGHT DECREASED [None]
